FAERS Safety Report 8790874 (Version 1)
Quarter: 2012Q4

REPORT INFORMATION
  Report Type: Spontaneous
  Country: US (occurrence: None)
  Receive Date: 20120906
  Receipt Date: 20120906
  Transmission Date: 20130627
  Serious: Yes (Hospitalization)
  Sender: FDA-Public Use
  Company Number: JPI-P-024703

PATIENT
  Age: 59 Year
  Sex: Female

DRUGS (2)
  1. XYREM [Suspect]
     Indication: NARCOLEPSY
     Dosage: (2.25 gm, 2 in 1 D), Oral
     Route: 048
     Dates: start: 20081010, end: 2009
  2. XYREM [Suspect]
     Indication: NARCOLEPSY
     Dosage: (3 gm, 2 in 1 D), Oral
     Route: 048
     Dates: start: 20090604

REACTIONS (9)
  - Pancreatitis [None]
  - Upper gastrointestinal haemorrhage [None]
  - Dizziness [None]
  - Fall [None]
  - Retching [None]
  - Renal cancer metastatic [None]
  - Metastases to lung [None]
  - Cyst [None]
  - Drug dose omission [None]
